FAERS Safety Report 5639508-X (Version None)
Quarter: 2008Q1

REPORT INFORMATION
  Report Type: 
  Country: None (occurrence: None)
  Receive Date: 20080225
  Receipt Date: 20080211
  Transmission Date: 20080703
  Serious: Yes (Hospitalization)
  Sender: FDA-Public Use
  Company Number: APP200800047

PATIENT
  Age: 78 Year
  Sex: Female

DRUGS (19)
  1. HEPARIN SODIUM INJECTION [Suspect]
     Indication: ANTICOAGULANT THERAPY
     Dosage: 2000-5000 UNITS DILUTED IN 5 ML OF SALINE (ONCE), INTRAVENOUS BOLUS
     Route: 040
     Dates: start: 20080119, end: 20080119
  2. HEPARIN SODIUM INJECTION [Suspect]
  3. FOLIC ACID [Concomitant]
  4. VITAMIN B (THIAMINE HYDROCHLORIDE) [Concomitant]
  5. ASCORBIC ACID [Concomitant]
  6. ZENOFER [Concomitant]
  7. HYDRALAZINE HCL [Concomitant]
  8. ISOSORBIDE (ISOSORBIDE) [Concomitant]
  9. LISINOPRIL [Concomitant]
  10. TOPROL-XL [Concomitant]
  11. ASPIRIN [Concomitant]
  12. PLAVIX [Concomitant]
  13. NEXIUM [Concomitant]
  14. ZOCOR [Concomitant]
  15. DARVOCET N (PROPACET) [Concomitant]
  16. TYLENOL W/ CODEINE NO. 3 [Concomitant]
  17. INSULIN REGULAR (INSULIN BOVINE) [Concomitant]
  18. INSULIN NPH (INSULIN ISOPHANE BOVINE) [Concomitant]
  19. ARANESP [Concomitant]

REACTIONS (4)
  - ANAPHYLACTIC REACTION [None]
  - DIARRHOEA [None]
  - OCCULT BLOOD POSITIVE [None]
  - THERAPEUTIC PRODUCT CONTAMINATION [None]
